FAERS Safety Report 7376731-0 (Version None)
Quarter: 2011Q1

REPORT INFORMATION
  Report Type: 
  Country: None (occurrence: None)
  Receive Date: 20110325
  Receipt Date: 20110322
  Transmission Date: 20110831
  Serious: Yes (Hospitalization, Disabling, Other)
  Sender: FDA-Public Use
  Company Number: CA-ABBOTT-11P-028-0713016-00

PATIENT
  Sex: Female

DRUGS (17)
  1. FUROSEMIDE [Concomitant]
     Indication: CARDIAC DISORDER
     Route: 048
     Dates: end: 20110301
  2. RAMIPRIL [Concomitant]
     Indication: PRODUCT USED FOR UNKNOWN INDICATION
     Route: 048
     Dates: start: 20101101
  3. HYDROMORPHONE [Concomitant]
     Indication: NERVE COMPRESSION
     Route: 048
     Dates: start: 20101101, end: 20110301
  4. LYRICA [Concomitant]
     Indication: PRODUCT USED FOR UNKNOWN INDICATION
  5. HUMIRA [Suspect]
     Indication: PSORIASIS
     Route: 058
     Dates: start: 20100901
  6. METFORMIN HYDROCHLORIDE [Concomitant]
     Indication: DIABETES MELLITUS
     Route: 048
     Dates: start: 20080101
  7. SPIRONOLACTONE [Concomitant]
     Indication: PRODUCT USED FOR UNKNOWN INDICATION
     Route: 048
     Dates: start: 20101101
  8. LANSOPRAZOL [Concomitant]
     Indication: PRODUCT USED FOR UNKNOWN INDICATION
     Route: 048
     Dates: start: 20110301, end: 20110301
  9. MORPHINE SULFATE [Concomitant]
     Route: 048
     Dates: start: 20101101
  10. EPIDURAL [Concomitant]
     Indication: NERVE COMPRESSION
     Route: 058
  11. CYMBALTA [Concomitant]
     Indication: PRODUCT USED FOR UNKNOWN INDICATION
     Route: 048
  12. CRESTOR [Concomitant]
     Indication: BLOOD CHOLESTEROL INCREASED
     Route: 048
  13. HYDROMORPHONE CHLORIDE [Concomitant]
     Indication: NERVE COMPRESSION
     Route: 048
     Dates: start: 20110301
  14. MORPHINE SULFATE [Concomitant]
     Indication: NERVE COMPRESSION
     Route: 048
     Dates: start: 20101101
  15. METOPROLOL [Concomitant]
     Indication: PRODUCT USED FOR UNKNOWN INDICATION
     Route: 048
     Dates: start: 20101101
  16. ASPIRIN [Concomitant]
     Indication: PRODUCT USED FOR UNKNOWN INDICATION
     Route: 048
     Dates: start: 20101101
  17. PREVACID [Concomitant]
     Indication: PRODUCT USED FOR UNKNOWN INDICATION
     Route: 048
     Dates: start: 20101101

REACTIONS (8)
  - AMNESIA [None]
  - INJECTION SITE PRURITUS [None]
  - INJECTION SITE ERYTHEMA [None]
  - SEPSIS [None]
  - PSORIASIS [None]
  - URINARY TRACT INFECTION [None]
  - MYOCARDIAL INFARCTION [None]
  - RASH MACULAR [None]
